FAERS Safety Report 15866160 (Version 3)
Quarter: 2020Q3

REPORT INFORMATION
  Report Type: Spontaneous
  Country: US (occurrence: US)
  Receive Date: 20190125
  Receipt Date: 20200707
  Transmission Date: 20201102
  Serious: Yes (Other)
  Sender: FDA-Public Use
  Company Number: US-BRISTOL-MYERS SQUIBB COMPANY-BMS-2019-004261

PATIENT
  Age: 4 Year
  Sex: Male
  Weight: 16.8 kg

DRUGS (1)
  1. NIVOLUMAB [Suspect]
     Active Substance: NIVOLUMAB
     Indication: CHOROID PLEXUS CARCINOMA
     Dosage: UNAVAILABLE
     Route: 065

REACTIONS (4)
  - Gastric ulcer [Unknown]
  - Intentional product use issue [Unknown]
  - Protein-losing gastroenteropathy [Unknown]
  - Duodenal ulcer [Unknown]
